FAERS Safety Report 5584075-2 (Version None)
Quarter: 2008Q1

REPORT INFORMATION
  Report Type: 
  Country: None (occurrence: None)
  Receive Date: 20080108
  Receipt Date: 20071226
  Transmission Date: 20080703
  Serious: Yes (Death, Life-Threatening)
  Sender: FDA-Public Use
  Company Number: JP-AMGEN-US252501

PATIENT
  Sex: Female
  Weight: 68 kg

DRUGS (1)
  1. ENBREL [Suspect]
     Indication: RHEUMATOID ARTHRITIS
     Dosage: 25 OR 50 MG PER WEEK
     Route: 058
     Dates: start: 20060905

REACTIONS (3)
  - CONDITION AGGRAVATED [None]
  - INTERSTITIAL LUNG DISEASE [None]
  - PANCREATITIS ACUTE [None]
